FAERS Safety Report 16333739 (Version 3)
Quarter: 2019Q2

REPORT INFORMATION
  Report Type: Report from Study
  Country: US (occurrence: US)
  Receive Date: 20190520
  Receipt Date: 20190528
  Transmission Date: 20190711
  Serious: Yes (Hospitalization)
  Sender: FDA-Public Use
  Company Number: US-JNJFOC-20190521153

PATIENT
  Age: 58 Year
  Sex: Female
  Weight: 65.32 kg

DRUGS (2)
  1. APREMILAST [Concomitant]
     Active Substance: APREMILAST
     Route: 065
  2. USTEKINUMAB [Suspect]
     Active Substance: USTEKINUMAB
     Indication: PSORIASIS
     Route: 058
     Dates: start: 201009

REACTIONS (3)
  - Dysphagia [Recovered/Resolved]
  - Gastrointestinal stenosis [Unknown]
  - Sepsis [Recovered/Resolved]

NARRATIVE: CASE EVENT DATE: 201805
